FAERS Safety Report 24439242 (Version 1)
Quarter: 2024Q4

REPORT INFORMATION
  Report Type: Spontaneous
  Country: US (occurrence: US)
  Receive Date: 20241015
  Receipt Date: 20241015
  Transmission Date: 20250115
  Serious: Yes (Other)
  Sender: SANOFI AVENTIS
  Company Number: US-SA-2024SA293087

PATIENT
  Age: 70 Year
  Sex: Female

DRUGS (7)
  1. DUPIXENT [Suspect]
     Active Substance: DUPILUMAB
     Indication: Dermatitis
     Dosage: 300 MG, Q4W
     Route: 058
     Dates: start: 202202
  2. MEKINIST [Concomitant]
     Active Substance: TRAMETINIB DIMETHYL SULFOXIDE
     Indication: Thyroid cancer
     Dosage: UNK
  3. MEKINIST [Concomitant]
     Active Substance: TRAMETINIB DIMETHYL SULFOXIDE
     Indication: Metastasis
  4. MEKINIST [Concomitant]
     Active Substance: TRAMETINIB DIMETHYL SULFOXIDE
     Indication: Metastases to lung
  5. TAFINLAR [Concomitant]
     Active Substance: DABRAFENIB MESYLATE
     Indication: Thyroid cancer
     Dosage: UNK
  6. TAFINLAR [Concomitant]
     Active Substance: DABRAFENIB MESYLATE
     Indication: Metastasis
  7. TAFINLAR [Concomitant]
     Active Substance: DABRAFENIB MESYLATE
     Indication: Metastases to lung

REACTIONS (3)
  - Cataract [Unknown]
  - Visual impairment [Unknown]
  - Product use in unapproved indication [Unknown]

NARRATIVE: CASE EVENT DATE: 20220201
